FAERS Safety Report 18622383 (Version 1)
Quarter: 2020Q4

REPORT INFORMATION
  Report Type: Spontaneous
  Country: US (occurrence: US)
  Receive Date: 20201215
  Receipt Date: 20201215
  Transmission Date: 20210114
  Serious: No
  Sender: FDA-Public Use
  Company Number: None

PATIENT
  Sex: Male

DRUGS (3)
  1. OTEZLA [Suspect]
     Active Substance: APREMILAST
     Indication: PRURITUS
     Route: 048
     Dates: start: 20201015
  2. OTEZLA [Suspect]
     Active Substance: APREMILAST
     Indication: AUTOIMMUNE LYMPHOPROLIFERATIVE SYNDROME
     Route: 048
     Dates: start: 20201015
  3. OTEZLA [Suspect]
     Active Substance: APREMILAST
     Indication: DERMATITIS
     Route: 048
     Dates: start: 20201015

REACTIONS (1)
  - Drug ineffective [None]
